FAERS Safety Report 18001159 (Version 6)
Quarter: 2021Q2

REPORT INFORMATION
  Report Type: Spontaneous
  Country: US (occurrence: US)
  Receive Date: 20200709
  Receipt Date: 20210412
  Transmission Date: 20210717
  Serious: No
  Sender: FDA-Public Use
  Company Number: US-BAUSCH-BL-2020-018236

PATIENT
  Age: 51 Year
  Sex: Female
  Weight: 54.93 kg

DRUGS (5)
  1. LORAZEPAM. [Suspect]
     Active Substance: LORAZEPAM
     Dosage: LAST 2 MONTHS PRIOR
     Route: 048
     Dates: start: 202005
  2. ATIVAN [Suspect]
     Active Substance: LORAZEPAM
     Indication: ANXIETY DISORDER
     Dosage: AS NEEDED
     Route: 048
     Dates: start: 1982
  3. LORAZEPAM. [Suspect]
     Active Substance: LORAZEPAM
     Indication: ANXIETY DISORDER
     Route: 048
     Dates: start: 2005
  4. ATIVAN [Concomitant]
     Active Substance: LORAZEPAM
     Indication: ANXIETY DISORDER
  5. TRILEPTAL [Concomitant]
     Active Substance: OXCARBAZEPINE
     Indication: PRODUCT USED FOR UNKNOWN INDICATION
     Route: 065

REACTIONS (14)
  - Drug ineffective [Unknown]
  - Parkinsonism [Not Recovered/Not Resolved]
  - Insomnia [Not Recovered/Not Resolved]
  - Anxiety [Not Recovered/Not Resolved]
  - Depression [Not Recovered/Not Resolved]
  - Suspected product quality issue [Unknown]
  - Malaise [Not Recovered/Not Resolved]
  - Eating disorder [Not Recovered/Not Resolved]
  - Mental disorder [Not Recovered/Not Resolved]
  - Discomfort [Not Recovered/Not Resolved]
  - Feeling abnormal [Not Recovered/Not Resolved]
  - Abdominal pain upper [Not Recovered/Not Resolved]
  - Condition aggravated [Not Recovered/Not Resolved]
  - Somnolence [Not Recovered/Not Resolved]

NARRATIVE: CASE EVENT DATE: 2010
